FAERS Safety Report 9804564 (Version 3)
Quarter: 2014Q2

REPORT INFORMATION
  Report Type: Spontaneous
  Country: US (occurrence: US)
  Receive Date: 20140108
  Receipt Date: 20140409
  Transmission Date: 20141212
  Serious: Yes (Hospitalization, Other)
  Sender: FDA-Public Use
  Company Number: US-GILEAD-2013-0090440

PATIENT
  Sex: Male

DRUGS (1)
  1. LETAIRIS [Suspect]
     Indication: PULMONARY HYPERTENSION
     Dosage: 5 MG, UNK
     Route: 048
     Dates: start: 20121102

REACTIONS (5)
  - Pneumonia [Unknown]
  - Chronic obstructive pulmonary disease [Unknown]
  - Pulmonary arterial hypertension [Unknown]
  - Myocardial ischaemia [Unknown]
  - Acute myocardial infarction [Unknown]
